FAERS Safety Report 8427468-8 (Version None)
Quarter: 2012Q2

REPORT INFORMATION
  Report Type: 
  Country: None (occurrence: None)
  Receive Date: 20120611
  Receipt Date: 20120606
  Transmission Date: 20120825
  Serious: Yes (Other)
  Sender: FDA-Public Use
  Company Number: IL-PFIZER INC-2012112705

PATIENT
  Age: 70 Year
  Sex: Male

DRUGS (1)
  1. LYRICA [Suspect]
     Indication: DIABETIC NEUROPATHY
     Dosage: UNK, NO MORE THAN 300MG DAILY

REACTIONS (3)
  - HEART RATE IRREGULAR [None]
  - PALPITATIONS [None]
  - ELECTROCARDIOGRAM ABNORMAL [None]
